FAERS Safety Report 16407041 (Version 2)
Quarter: 2019Q2

REPORT INFORMATION
  Report Type: Spontaneous
  Country: AU (occurrence: AU)
  Receive Date: 20190608
  Receipt Date: 20190619
  Transmission Date: 20190711
  Serious: Yes (Hospitalization, Other)
  Sender: FDA-Public Use
  Company Number: AU-009507513-1906AUS001666

PATIENT
  Age: 51 Year
  Sex: Female

DRUGS (2)
  1. ALBENDAZOLE. [Suspect]
     Active Substance: ALBENDAZOLE
     Indication: STRONGYLOIDIASIS
     Dosage: UNK
     Dates: start: 2013
  2. STROMECTOL [Suspect]
     Active Substance: IVERMECTIN
     Indication: STRONGYLOIDIASIS
     Dosage: UNK
     Route: 048
     Dates: start: 2013, end: 2016

REACTIONS (9)
  - Pain [Unknown]
  - Myalgia [Unknown]
  - Fall [Unknown]
  - Paralysis [Unknown]
  - Visual impairment [Unknown]
  - Fatigue [Unknown]
  - Hepatic failure [Unknown]
  - Immobile [Unknown]
  - Blood zinc decreased [Unknown]

NARRATIVE: CASE EVENT DATE: 2013
